FAERS Safety Report 6880875-7 (Version None)
Quarter: 2010Q3

REPORT INFORMATION
  Report Type: 
  Country: None (occurrence: None)
  Receive Date: 20100728
  Receipt Date: 20100722
  Transmission Date: 20110219
  Serious: Yes (Hospitalization)
  Sender: FDA-Public Use
  Company Number: US-GILEAD-2010-0030404

PATIENT
  Sex: Female
  Weight: 44.492 kg

DRUGS (18)
  1. LETAIRIS [Suspect]
     Indication: PULMONARY ARTERIAL HYPERTENSION
     Route: 048
     Dates: start: 20070801
  2. REMODULIN [Concomitant]
  3. VIAGRA [Concomitant]
  4. OXYGEN [Concomitant]
  5. COUMADIN [Concomitant]
  6. HEPARIN [Concomitant]
  7. SOTALOL HCL [Concomitant]
  8. STRATTERA [Concomitant]
  9. XOPENEX [Concomitant]
  10. NEXIUM [Concomitant]
  11. ZOLOFT [Concomitant]
  12. XANAX [Concomitant]
  13. LEXAPRO [Concomitant]
  14. SYNTHROID [Concomitant]
  15. DEPROPREVERA [Concomitant]
  16. IBUPROFEN TABLETS [Concomitant]
  17. POTASSIUM [Concomitant]
  18. SODIUM CHLORIDE [Concomitant]

REACTIONS (1)
  - TRANSPLANT [None]
